FAERS Safety Report 9870260 (Version 1)
Quarter: 2014Q1

REPORT INFORMATION
  Report Type: Spontaneous
  Country: FR (occurrence: FR)
  Receive Date: 20140205
  Receipt Date: 20140205
  Transmission Date: 20141002
  Serious: Yes (Hospitalization, Other)
  Sender: FDA-Public Use
  Company Number: FR-PFIZER INC-2014030505

PATIENT
  Age: 48 Year
  Sex: Male

DRUGS (7)
  1. CAMPTO [Suspect]
     Indication: COLON CANCER METASTATIC
     Dosage: UNK
     Route: 041
     Dates: start: 20101026, end: 201104
  2. FLUOROURACIL [Suspect]
     Indication: COLON CANCER METASTATIC
     Dosage: UNK
     Route: 041
     Dates: start: 200911, end: 201004
  3. FLUOROURACIL [Suspect]
     Dosage: UNK
     Route: 041
     Dates: start: 20101026, end: 201104
  4. LEVOLEUCOVORIN CALCIUM [Suspect]
     Indication: COLON CANCER METASTATIC
     Dosage: UNK
     Route: 041
     Dates: start: 20101026, end: 201104
  5. FOLINIC ACID [Suspect]
     Indication: COLON CANCER METASTATIC
     Dosage: 12 COURSES
     Route: 041
     Dates: start: 200911, end: 201004
  6. OXALIPLATIN [Suspect]
     Indication: COLON CANCER METASTATIC
     Dosage: 12 COURSES
     Route: 041
     Dates: start: 200911, end: 201004
  7. AVASTIN [Suspect]
     Indication: COLON CANCER METASTATIC
     Dosage: UNK
     Route: 041
     Dates: start: 20101026, end: 201104

REACTIONS (2)
  - Second primary malignancy [Unknown]
  - Acute myeloid leukaemia [Unknown]
